FAERS Safety Report 10263948 (Version 1)
Quarter: 2014Q2

REPORT INFORMATION
  Report Type: Spontaneous
  Country: ES (occurrence: ES)
  Receive Date: 20140627
  Receipt Date: 20140627
  Transmission Date: 20141212
  Serious: Yes (Other)
  Sender: FDA-Public Use
  Company Number: ES-009507513-1406ESP011104

PATIENT
  Age: 80 Year
  Sex: Male
  Weight: 78.8 kg

DRUGS (1)
  1. INEGY 10MG/40MG COMPRIMIDOS [Suspect]
     Dosage: 0-0-1
     Route: 048
     Dates: start: 20130711, end: 20140519

REACTIONS (3)
  - Rhabdomyolysis [Unknown]
  - Epistaxis [Unknown]
  - Glossitis [Unknown]
